FAERS Safety Report 12547505 (Version 5)
Quarter: 2018Q1

REPORT INFORMATION
  Report Type: Report from Study
  Country: CA (occurrence: CA)
  Receive Date: 20160712
  Receipt Date: 20180201
  Transmission Date: 20180508
  Serious: Yes (Other)
  Sender: FDA-Public Use
  Company Number: CA-ROCHE-1658704

PATIENT
  Age: 52 Year
  Sex: Female
  Weight: 134.7 kg

DRUGS (22)
  1. GLUCOSAMINE CHONDROITIN COMPLEX [Concomitant]
     Active Substance: CHONDROITIN SULFATE (BOVINE)\GLUCOSAMINE HYDROCHLORIDE
  2. OMEPRAZOLE. [Concomitant]
     Active Substance: OMEPRAZOLE
  3. RITUXAN [Suspect]
     Active Substance: RITUXIMAB
     Dosage: DAY 1, 15
     Route: 042
     Dates: start: 20170831
  4. MYCOPHENOLATE MOFETIL. [Concomitant]
     Active Substance: MYCOPHENOLATE MOFETIL
  5. ACETAMINOPHEN. [Concomitant]
     Active Substance: ACETAMINOPHEN
     Route: 048
     Dates: start: 20151023
  6. FERRITIN [Concomitant]
     Active Substance: FERRITIN
  7. CELEBREX [Concomitant]
     Active Substance: CELECOXIB
  8. LANREOTIDE [Concomitant]
     Active Substance: LANREOTIDE
  9. PREGABALIN. [Concomitant]
     Active Substance: PREGABALIN
  10. PREDNISONE. [Concomitant]
     Active Substance: PREDNISONE
  11. VITAMIN B12 [Concomitant]
     Active Substance: CYANOCOBALAMIN
  12. BISOPROLOL [Concomitant]
     Active Substance: BISOPROLOL
  13. ALENDRONATE [Concomitant]
     Active Substance: ALENDRONATE SODIUM
  14. RITUXAN [Suspect]
     Active Substance: RITUXIMAB
     Indication: ANTISYNTHETASE SYNDROME
     Route: 042
     Dates: start: 20151023
  15. RITUXAN [Suspect]
     Active Substance: RITUXIMAB
     Dosage: DAY 1, 15
     Route: 042
     Dates: start: 20151106
  16. METHYLPREDNISOLONE. [Concomitant]
     Active Substance: METHYLPREDNISOLONE
     Route: 042
     Dates: start: 20151023
  17. DIPHENHYDRAMINE HCL [Concomitant]
     Active Substance: DIPHENHYDRAMINE HYDROCHLORIDE
     Route: 048
     Dates: start: 20151023
  18. ZOLOFT [Concomitant]
     Active Substance: SERTRALINE HYDROCHLORIDE
  19. HYDROCHLOROTHIAZIDE. [Concomitant]
     Active Substance: HYDROCHLOROTHIAZIDE
  20. METHOTREXATE. [Concomitant]
     Active Substance: METHOTREXATE
  21. MELATONIN [Concomitant]
     Active Substance: MELATONIN
  22. HYDROMORPH [Concomitant]
     Active Substance: HYDROMORPHONE

REACTIONS (11)
  - Off label use [Unknown]
  - Blindness [Not Recovered/Not Resolved]
  - Respiratory rate increased [Unknown]
  - Alopecia [Not Recovered/Not Resolved]
  - Abdominal pain [Unknown]
  - Osteonecrosis [Unknown]
  - Oxygen saturation decreased [Unknown]
  - Weight increased [Unknown]
  - Weight decreased [Unknown]
  - Diabetes mellitus [Unknown]
  - Blood pressure fluctuation [Unknown]

NARRATIVE: CASE EVENT DATE: 201511
